FAERS Safety Report 14079696 (Version 1)
Quarter: 2017Q4

REPORT INFORMATION
  Report Type: Spontaneous
  Country: US (occurrence: US)
  Receive Date: 20171012
  Receipt Date: 20171012
  Transmission Date: 20180321
  Serious: Yes (Other)
  Sender: FDA-Public Use
  Company Number: US-PFIZER INC-2017434425

PATIENT
  Age: 81 Year
  Sex: Male
  Weight: 70.31 kg

DRUGS (2)
  1. XANAX [Suspect]
     Active Substance: ALPRAZOLAM
     Dosage: 0.25MG TABLET BY MOUTH AT BEDTIME
     Route: 048
     Dates: start: 2017
  2. XANAX [Suspect]
     Active Substance: ALPRAZOLAM
     Indication: SLEEP DISORDER
     Dosage: 0.5 MG, 1X/DAY (0.5MG TABLET ONCE BY MOUTH AT BEDTIME)
     Route: 048
     Dates: start: 2015

REACTIONS (8)
  - Hypersensitivity [Unknown]
  - Parkinson^s disease [Unknown]
  - Insomnia [Unknown]
  - Chest discomfort [Not Recovered/Not Resolved]
  - Chest pain [Not Recovered/Not Resolved]
  - Hypersomnia [Unknown]
  - Respiratory tract congestion [Recovering/Resolving]
  - Tremor [Unknown]

NARRATIVE: CASE EVENT DATE: 2016
